FAERS Safety Report 10061957 (Version 2)
Quarter: 2014Q2

REPORT INFORMATION
  Report Type: Spontaneous
  Country: US (occurrence: US)
  Receive Date: 20140407
  Receipt Date: 20140616
  Transmission Date: 20141212
  Serious: Yes (Death, Other)
  Sender: FDA-Public Use
  Company Number: US-ASTELLAS-2014US003493

PATIENT
  Sex: Female

DRUGS (2)
  1. TARCEVA [Suspect]
     Indication: LUNG NEOPLASM MALIGNANT
     Route: 048
     Dates: start: 201304
  2. TARCEVA [Suspect]
     Dosage: 150 UNK, UNK
     Route: 048
     Dates: start: 20130919, end: 20140325

REACTIONS (10)
  - Respiratory failure [Fatal]
  - Metabolic acidosis [Fatal]
  - Hyperkalaemia [Fatal]
  - Failure to thrive [Fatal]
  - Malignant neoplasm progression [Fatal]
  - Ventricular tachycardia [Unknown]
  - White blood cell count increased [Unknown]
  - Abdominal pain [Unknown]
  - Nausea [Unknown]
  - Diarrhoea [Unknown]
